FAERS Safety Report 17498149 (Version 1)
Quarter: 2020Q1

REPORT INFORMATION
  Report Type: Report from Study
  Country: US (occurrence: US)
  Receive Date: 20200304
  Receipt Date: 20200304
  Transmission Date: 20200409
  Serious: Yes (Other)
  Sender: FDA-Public Use
  Company Number: US-JNJFOC-20200238106

PATIENT
  Age: 18 Year
  Sex: Male

DRUGS (2)
  1. SPRAVATO [Suspect]
     Active Substance: ESKETAMINE
     Indication: DEPRESSION
  2. LORAZEPAM. [Concomitant]
     Active Substance: LORAZEPAM
     Dosage: ONE TO TWO TABLETS EACH MORNING AND BEDTIME
     Route: 048

REACTIONS (3)
  - Musculoskeletal stiffness [Recovered/Resolved]
  - Hypokinesia [Recovered/Resolved]
  - Sensory loss [Recovered/Resolved]

NARRATIVE: CASE EVENT DATE: 20200219
